FAERS Safety Report 6359736-8 (Version None)
Quarter: 2009Q3

REPORT INFORMATION
  Report Type: 
  Country: None (occurrence: None)
  Receive Date: 20090917
  Receipt Date: 20090910
  Transmission Date: 20100115
  Serious: Yes (Life-Threatening)
  Sender: FDA-Public Use
  Company Number: JP-MERCK-0909USA00264

PATIENT
  Age: 18 Year
  Sex: Female
  Weight: 40 kg

DRUGS (4)
  1. PEPCID RPD [Suspect]
     Indication: PROPHYLAXIS AGAINST GASTROINTESTINAL ULCER
     Route: 048
     Dates: start: 20090822, end: 20090826
  2. PREDONINE [Concomitant]
     Indication: NEURODEGENERATIVE DISORDER
     Route: 048
  3. SOLU-MEDROL [Concomitant]
     Indication: PAIN
     Route: 065
     Dates: start: 20090822, end: 20090824
  4. IMMUNE GLOBULIN INTRAVENOUS (HUMAN) [Concomitant]
     Indication: GUILLAIN-BARRE SYNDROME
     Route: 065
     Dates: start: 20090824, end: 20090828

REACTIONS (1)
  - SINUS BRADYCARDIA [None]
